FAERS Safety Report 26084718 (Version 3)
Quarter: 2025Q4

REPORT INFORMATION
  Report Type: Report from Study
  Country: US (occurrence: US)
  Receive Date: 20251124
  Receipt Date: 20251223
  Transmission Date: 20260118
  Serious: No
  Sender: ACADIA PHARMACEUTICALS
  Company Number: US-ACADIA PHARMACEUTICALS INC.-ACA-2025-PIM-012511

PATIENT
  Sex: Male

DRUGS (12)
  1. NUPLAZID [Suspect]
     Active Substance: PIMAVANSERIN TARTRATE
     Indication: Parkinson^s disease psychosis
     Dosage: 34 MILLIGRAM, QD
     Route: 048
     Dates: start: 20250922
  2. CARBIDOPA\LEVODOPA [Concomitant]
     Active Substance: CARBIDOPA\LEVODOPA
  3. TRIAMCINOLONE ACETONIDE [Concomitant]
     Active Substance: TRIAMCINOLONE ACETONIDE
  4. MINERALS\VITAMINS [Concomitant]
     Active Substance: MINERALS\VITAMINS
     Dosage: COMPLETE 18MG-0.4MG
  5. TAMSULOSIN HYDROCHLORIDE [Concomitant]
     Active Substance: TAMSULOSIN HYDROCHLORIDE
  6. LORATADINE [Concomitant]
     Active Substance: LORATADINE
  7. MIRALAX [Concomitant]
     Active Substance: POLYETHYLENE GLYCOL 3350
  8. ALEVE [Concomitant]
     Active Substance: NAPROXEN SODIUM
  9. VITAMIN B12 [Concomitant]
     Active Substance: CYANOCOBALAMIN
  10. COLACE [Concomitant]
     Active Substance: DOCUSATE SODIUM
  11. TROSPIUM CHLORIDE [Concomitant]
     Active Substance: TROSPIUM CHLORIDE
     Dosage: ER
  12. ASPIRIN [Concomitant]
     Active Substance: ASPIRIN
     Dosage: EC/DR

REACTIONS (1)
  - Chest pain [Unknown]
